FAERS Safety Report 15034474 (Version 1)
Quarter: 2018Q2

REPORT INFORMATION
  Report Type: Spontaneous
  Country: FR (occurrence: FR)
  Receive Date: 20180620
  Receipt Date: 20180620
  Transmission Date: 20180711
  Serious: Yes (Death)
  Sender: FDA-Public Use
  Company Number: FR-TEVA-2018-FR-908741

PATIENT
  Age: 23 Year
  Sex: Female
  Weight: 48 kg

DRUGS (4)
  1. THERALENE4 PER CENT, ORAL SOLUTION IN DROPS [Suspect]
     Active Substance: TRIMEPRAZINE TARTRATE
     Indication: PSYCHOTIC DISORDER
     Dosage: 30 GTT DAILY;
     Route: 048
     Dates: start: 20180318, end: 20180401
  2. RISPERDAL [Suspect]
     Active Substance: RISPERIDONE
     Indication: PSYCHOTIC DISORDER
     Dosage: 4 MILLIGRAM DAILY;
     Route: 048
     Dates: start: 20180330, end: 20180331
  3. ARIPIPRAZOLE. [Suspect]
     Active Substance: ARIPIPRAZOLE
     Indication: PSYCHOTIC DISORDER
     Dosage: 10 MILLIGRAM DAILY;
     Route: 048
     Dates: start: 20180328, end: 20180328
  4. LOXAPAC, ORAL SOLUTION [Suspect]
     Active Substance: LOXAPINE
     Indication: PSYCHOTIC DISORDER
     Dosage: 195 GTT DAILY;
     Route: 048
     Dates: start: 20180324, end: 20180401

REACTIONS (2)
  - Intestinal ischaemia [Fatal]
  - Death [Fatal]

NARRATIVE: CASE EVENT DATE: 20180331
